FAERS Safety Report 5093001-4 (Version None)
Quarter: 2006Q3

REPORT INFORMATION
  Report Type: 
  Country: None (occurrence: None)
  Receive Date: 20060830
  Receipt Date: 20060720
  Transmission Date: 20061208
  Serious: Yes (Disabling)
  Sender: FDA-Public Use
  Company Number: DE-GLAXOSMITHKLINE-D0050397A

PATIENT
  Age: 11 Year
  Sex: Female
  Weight: 29 kg

DRUGS (1)
  1. VIANI [Suspect]
     Route: 065
     Dates: start: 19990101

REACTIONS (2)
  - ENAMEL ANOMALY [None]
  - TOOTH FRACTURE [None]
